FAERS Safety Report 5302463-6 (Version None)
Quarter: 2007Q2

REPORT INFORMATION
  Report Type: 
  Country: None (occurrence: None)
  Receive Date: 20070419
  Receipt Date: 20070406
  Transmission Date: 20071010
  Serious: Yes (Other)
  Sender: FDA-Public Use
  Company Number: PHBS2007JP06045

PATIENT
  Age: 67 Year
  Sex: Male

DRUGS (4)
  1. NITRODERM [Suspect]
     Indication: ANGINA PECTORIS
     Dosage: 1 DF/DAY
     Route: 062
  2. FLUITRAN [Concomitant]
     Dosage: 2 MG, UNK
     Route: 048
  3. MUCODYNE [Concomitant]
     Dosage: 1500 MG, UNK
     Route: 048
  4. LASIX [Concomitant]
     Dosage: 20 MG, UNK
     Route: 048

REACTIONS (3)
  - PANCYTOPENIA [None]
  - PLATELET COUNT DECREASED [None]
  - WHITE BLOOD CELL COUNT DECREASED [None]
